FAERS Safety Report 20259270 (Version 2)
Quarter: 2022Q1

REPORT INFORMATION
  Report Type: Report from Study
  Country: US (occurrence: US)
  Receive Date: 20211230
  Receipt Date: 20220203
  Transmission Date: 20220423
  Serious: Yes (Death)
  Sender: FDA-Public Use
  Company Number: US-OTSUKA-2021_045892

PATIENT
  Age: 81 Year
  Sex: Female

DRUGS (8)
  1. DEXTROMETHORPHAN HYDROBROMIDE\QUINIDINE SULFATE [Suspect]
     Active Substance: DEXTROMETHORPHAN HYDROBROMIDE\QUINIDINE SULFATE
     Indication: Affect lability
     Dosage: 1 DF (20-10 MG), BID
     Route: 065
     Dates: start: 20210506
  2. SENNA LEAF [Concomitant]
     Active Substance: SENNA LEAF
     Indication: Constipation
     Dosage: 86 MG, BID
     Route: 065
     Dates: start: 20210803, end: 20210811
  3. VALPROIC ACID [Concomitant]
     Active Substance: VALPROIC ACID
     Indication: Dementia
     Dosage: 250 MG/ML
     Route: 065
     Dates: start: 20210628, end: 20210811
  4. ZYPREXA [Concomitant]
     Active Substance: OLANZAPINE
     Indication: Dementia
     Dosage: 5 G
     Route: 065
     Dates: start: 20210622, end: 20210811
  5. ATIVAN [Concomitant]
     Active Substance: LORAZEPAM
     Indication: Anxiety
     Dosage: 0.5 G
     Route: 065
     Dates: start: 20210521, end: 20210811
  6. NAMENDA [Concomitant]
     Active Substance: MEMANTINE HYDROCHLORIDE
     Indication: Dementia
     Dosage: 10 G
     Route: 065
     Dates: start: 20191013, end: 20210811
  7. PEPCID AC [Concomitant]
     Active Substance: FAMOTIDINE
     Indication: Gastrooesophageal reflux disease
     Dosage: 20 G
     Route: 065
     Dates: start: 20191013, end: 20210811
  8. COZAAR [Concomitant]
     Active Substance: LOSARTAN POTASSIUM
     Indication: Hypertension
     Dosage: 25 G
     Route: 065
     Dates: start: 20191013, end: 20210811

REACTIONS (1)
  - Dementia [Fatal]

NARRATIVE: CASE EVENT DATE: 20210811
